FAERS Safety Report 4533463-1 (Version None)
Quarter: 2004Q4

REPORT INFORMATION
  Report Type: 
  Country: None (occurrence: None)
  Receive Date: 20041210
  Receipt Date: 20040302
  Transmission Date: 20050328
  Serious: Yes (Hospitalization)
  Sender: FDA-Public Use
  Company Number: RS004289-USA

PATIENT
  Age: 66 Year
  Sex: Female

DRUGS (4)
  1. ACIPHEX [Suspect]
     Indication: DYSPEPSIA
     Dosage: 20 MG, 1 IN 1 D, ORAL
     Route: 048
  2. DIGOXIN [Concomitant]
  3. CATAPRES [Concomitant]
  4. COREG [Concomitant]

REACTIONS (4)
  - ASTHENIA [None]
  - DEHYDRATION [None]
  - DIARRHOEA [None]
  - VOMITING [None]
